FAERS Safety Report 5040920-0 (Version None)
Quarter: 2006Q2

REPORT INFORMATION
  Report Type: 
  Country: None (occurrence: None)
  Receive Date: 20060601
  Receipt Date: 20060302
  Transmission Date: 20061013
  Serious: No
  Sender: FDA-Public Use
  Company Number: 2006PV009586

PATIENT
  Age: 62 Year
  Sex: Male
  Weight: 76.6579 kg

DRUGS (5)
  1. BYETTA [Suspect]
     Indication: DIABETES MELLITUS NON-INSULIN-DEPENDENT
     Dosage: 5 MCG;BID;SC
     Route: 058
     Dates: start: 20060222
  2. METFORMIN [Concomitant]
  3. AVANDIA [Concomitant]
  4. AMARYL [Concomitant]
  5. HUMULIN N [Concomitant]

REACTIONS (4)
  - BLOOD GLUCOSE DECREASED [None]
  - BLOOD GLUCOSE FLUCTUATION [None]
  - NAUSEA [None]
  - SINUS HEADACHE [None]
